FAERS Safety Report 24250664 (Version 1)
Quarter: 2024Q3

REPORT INFORMATION
  Report Type: Spontaneous
  Country: US (occurrence: US)
  Receive Date: 20240826
  Receipt Date: 20240826
  Transmission Date: 20241017
  Serious: Yes (Other)
  Sender: BRISTOL MYERS SQUIBB
  Company Number: US-BRISTOL-MYERS SQUIBB COMPANY-2024-134311

PATIENT
  Age: 80 Year
  Sex: Male
  Weight: 77.56 kg

DRUGS (2)
  1. LENALIDOMIDE [Suspect]
     Active Substance: LENALIDOMIDE
     Indication: Plasma cell myeloma
     Dosage: D 1-14 Q 28 DAYS
     Route: 048
     Dates: start: 20230123
  2. LENALIDOMIDE [Suspect]
     Active Substance: LENALIDOMIDE
     Dosage: D 1-14 Q 28 DAYS
     Route: 048

REACTIONS (3)
  - Neuropathy peripheral [Unknown]
  - Renal function test abnormal [Unknown]
  - Off label use [Unknown]
